FAERS Safety Report 12624195 (Version 1)
Quarter: 2016Q3

REPORT INFORMATION
  Report Type: Report from Study
  Country: US (occurrence: US)
  Receive Date: 20160805
  Receipt Date: 20160805
  Transmission Date: 20161109
  Serious: Yes (Other)
  Sender: FDA-Public Use
  Company Number: US-ROCHE-772112

PATIENT
  Age: 11 Year
  Sex: Male
  Weight: 57.7 kg

DRUGS (10)
  1. VISMODEGIB [Suspect]
     Active Substance: VISMODEGIB
     Dosage: TREATMENT ASSIGNMENT CODE DL1 COUSE 2
     Route: 048
  2. VISMODEGIB [Suspect]
     Active Substance: VISMODEGIB
     Dosage: TREATMENT ASSIGNMENT CODE DL1 COUSE 5
     Route: 048
  3. VISMODEGIB [Suspect]
     Active Substance: VISMODEGIB
     Dosage: TREATMENT ASSIGNMENT CODE DL1 COUSE 15
     Route: 048
     Dates: start: 20100503, end: 20100818
  4. VISMODEGIB [Suspect]
     Active Substance: VISMODEGIB
     Dosage: TREATMENT ASSIGNMENT CODE DL1 COUSE 9
     Route: 048
  5. VISMODEGIB [Suspect]
     Active Substance: VISMODEGIB
     Indication: MEDULLOBLASTOMA
     Dosage: 85 MG/M2, TREATMENT ASSIGNMENT CODE DL1 COUSE 1
     Route: 048
  6. VISMODEGIB [Suspect]
     Active Substance: VISMODEGIB
     Dosage: TREATMENT ASSIGNMENT CODE DL1 COUSE 4
     Route: 048
  7. VISMODEGIB [Suspect]
     Active Substance: VISMODEGIB
     Dosage: TREATMENT ASSIGNMENT CODE DL1 COUSE 11
     Route: 048
  8. VISMODEGIB [Suspect]
     Active Substance: VISMODEGIB
     Dosage: TREATMENT ASSIGNMENT CODE DL1 COUSE 12
     Route: 048
  9. DEXAMETHASONE. [Concomitant]
     Active Substance: DEXAMETHASONE
     Indication: PRODUCT USED FOR UNKNOWN INDICATION
  10. VISMODEGIB [Suspect]
     Active Substance: VISMODEGIB
     Dosage: TREATMENT ASSIGNMENT CODE DL1 COUSE 6
     Route: 048

REACTIONS (5)
  - Thermal burn [Unknown]
  - Fatigue [Unknown]
  - Decreased appetite [Not Recovered/Not Resolved]
  - Weight decreased [Not Recovered/Not Resolved]
  - Peripheral sensory neuropathy [Unknown]

NARRATIVE: CASE EVENT DATE: 20100511
